FAERS Safety Report 7966915-2 (Version None)
Quarter: 2011Q4

REPORT INFORMATION
  Report Type: 
  Country: None (occurrence: None)
  Receive Date: 20111209
  Receipt Date: 20111206
  Transmission Date: 20120403
  Serious: Yes (Other)
  Sender: FDA-Public Use
  Company Number: JP-PFIZER INC-2011297909

PATIENT
  Age: 89 Year
  Sex: Male

DRUGS (12)
  1. FERROUS CITRATE [Concomitant]
     Dosage: UNK
  2. VARENICLINE TARTRATE [Suspect]
     Indication: SMOKING CESSATION THERAPY
     Dosage: UNK
     Route: 048
     Dates: start: 20111127, end: 20110101
  3. NIRENA L [Concomitant]
     Dosage: UNK
  4. STANZOME [Concomitant]
     Dosage: UNK
  5. ACTOS [Concomitant]
     Dosage: UNK
  6. VARENICLINE TARTRATE [Suspect]
     Dosage: 1 MG, DAILY
     Route: 048
     Dates: start: 20111204, end: 20111204
  7. ARICEPT [Concomitant]
     Dosage: UNK
  8. FANTEZOLE [Concomitant]
     Dosage: UNK
  9. LIMARMONE [Concomitant]
     Dosage: UNK
  10. LASIX [Concomitant]
     Dosage: UNK
  11. CANDESARTAN CILEXETIL [Concomitant]
     Dosage: UNK
  12. ALDACTONE [Concomitant]
     Dosage: UNK

REACTIONS (3)
  - PLEURAL EFFUSION [None]
  - NOCTURNAL DYSPNOEA [None]
  - OEDEMA [None]
